FAERS Safety Report 19179571 (Version 3)
Quarter: 2021Q4

REPORT INFORMATION
  Report Type: Spontaneous
  Country: US (occurrence: US)
  Receive Date: 20210426
  Receipt Date: 20211028
  Transmission Date: 20220303
  Serious: Yes (Hospitalization, Other)
  Sender: FDA-Public Use
  Company Number: US-HIKMA PHARMACEUTICALS USA INC.-US-H14001-21-01985

PATIENT
  Age: 81 Year
  Sex: Male

DRUGS (6)
  1. INFUMORPH [Suspect]
     Active Substance: MORPHINE SULFATE
     Indication: Spinal pain
     Route: 037
  2. INFUMORPH [Suspect]
     Active Substance: MORPHINE SULFATE
     Dosage: 0.03137 MG/HR
     Route: 037
  3. INFUMORPH [Suspect]
     Active Substance: MORPHINE SULFATE
     Dosage: 0.03448 MG/HR
     Route: 037
  4. INFUMORPH [Suspect]
     Active Substance: MORPHINE SULFATE
     Dosage: 0.8221 MG/HR
     Route: 037
  5. INFUMORPH [Suspect]
     Active Substance: MORPHINE SULFATE
     Dosage: 2.36522 MG/DAY (0.09855 MG/HR)
     Route: 037
  6. INFUMORPH [Suspect]
     Active Substance: MORPHINE SULFATE
     Dosage: 2.9577 MG/DAY (0.12324 MG/HR)
     Route: 037

REACTIONS (8)
  - Dyspnoea [Recovered/Resolved]
  - Oedema peripheral [Recovered/Resolved]
  - Pulmonary oedema [Unknown]
  - Polyuria [Unknown]
  - Mental status changes [Recovered/Resolved]
  - Anxiety [Unknown]
  - Agitation [Unknown]
  - Confusional state [Unknown]

NARRATIVE: CASE EVENT DATE: 20210402
